FAERS Safety Report 10611374 (Version 5)
Quarter: 2015Q4

REPORT INFORMATION
  Report Type: Spontaneous
  Country: JP (occurrence: JP)
  Receive Date: 20141126
  Receipt Date: 20151228
  Transmission Date: 20160304
  Serious: Yes (Life-Threatening, Hospitalization, Other)
  Sender: FDA-Public Use
  Company Number: JP-GLAXOSMITHKLINE-JP2014JPN018804

PATIENT
  Age: 62 Year
  Sex: Male

DRUGS (6)
  1. CONTOMIN [Suspect]
     Active Substance: CHLORPROMAZINE
     Dosage: UNK
     Route: 048
  2. PAXIL [Suspect]
     Active Substance: PAROXETINE HYDROCHLORIDE
     Dosage: UNK
     Route: 048
  3. LAMICTAL [Suspect]
     Active Substance: LAMOTRIGINE
     Indication: EPILEPSY
     Dosage: 50 MG, 1D
     Route: 048
     Dates: start: 20141012
  4. FEBURIC [Suspect]
     Active Substance: FEBUXOSTAT
     Dosage: UNK
     Route: 048
  5. TEGRETOL [Concomitant]
     Active Substance: CARBAMAZEPINE
  6. LAMICTAL [Suspect]
     Active Substance: LAMOTRIGINE
     Indication: CONVULSION PROPHYLAXIS
     Dosage: 100 MG, 1D
     Route: 048
     Dates: end: 20141110

REACTIONS (14)
  - Nasopharyngitis [Unknown]
  - Lymphocyte stimulation test positive [Unknown]
  - Renal impairment [Unknown]
  - Rash [Unknown]
  - Myoglobin blood increased [Unknown]
  - Stevens-Johnson syndrome [Unknown]
  - Blood creatine phosphokinase increased [Unknown]
  - Dehydration [Unknown]
  - Mucous membrane disorder [Unknown]
  - Skin erosion [Unknown]
  - Rhabdomyolysis [Recovered/Resolved]
  - Pyrexia [Unknown]
  - Generalised erythema [Unknown]
  - Drug eruption [Unknown]

NARRATIVE: CASE EVENT DATE: 20141110
